FAERS Safety Report 5689400-X (Version None)
Quarter: 2008Q1

REPORT INFORMATION
  Report Type: 
  Country: None (occurrence: None)
  Receive Date: 20080331
  Receipt Date: 20080321
  Transmission Date: 20080703
  Serious: Yes (Other)
  Sender: FDA-Public Use
  Company Number: US-ABBOTT-08P-163-0443869-00

PATIENT
  Sex: Male
  Weight: 90.346 kg

DRUGS (2)
  1. HUMIRA [Suspect]
     Indication: ANKYLOSING SPONDYLITIS
     Route: 058
     Dates: start: 20070402
  2. HUMIRA [Suspect]
     Indication: CROHN'S DISEASE

REACTIONS (6)
  - MUSCLE ATROPHY [None]
  - MUSCLE SPASMS [None]
  - MUSCULAR WEAKNESS [None]
  - MYOPATHY [None]
  - NERVE CONDUCTION STUDIES ABNORMAL [None]
  - PAIN IN EXTREMITY [None]
